FAERS Safety Report 24369350 (Version 2)
Quarter: 2025Q1

REPORT INFORMATION
  Report Type: Spontaneous
  Country: JP (occurrence: JP)
  Receive Date: 20240927
  Receipt Date: 20250121
  Transmission Date: 20250409
  Serious: Yes (Other)
  Sender: MERCK
  Company Number: JP-MSD-2409JPN003387J

PATIENT
  Age: 30 Year
  Sex: Female

DRUGS (11)
  1. BELSOMRA [Interacting]
     Active Substance: SUVOREXANT
     Indication: Initial insomnia
     Dosage: 20 MILLIGRAM, QD
     Route: 048
     Dates: start: 20231017, end: 20231019
  2. BELSOMRA [Suspect]
     Active Substance: SUVOREXANT
     Route: 048
  3. BELSOMRA [Suspect]
     Active Substance: SUVOREXANT
     Route: 048
     Dates: start: 20231020, end: 20231024
  4. OLANZAPINE [Interacting]
     Active Substance: OLANZAPINE
     Route: 048
     Dates: end: 20231020
  5. OLANZAPINE [Interacting]
     Active Substance: OLANZAPINE
     Route: 048
  6. ZYPREXA [Concomitant]
     Active Substance: OLANZAPINE
     Route: 048
     Dates: start: 20230904, end: 20231022
  7. JUMIHAIDOKUTO [ARALIA CORDATA RHIZOME;BUPLEURUM FALCATUM ROOT;GLYCYRRH [Concomitant]
     Route: 048
     Dates: start: 20231012
  8. HERBALS [Concomitant]
     Active Substance: HERBALS
     Route: 048
     Dates: start: 20230911
  9. MAGNESIUM OXIDE [Concomitant]
     Active Substance: MAGNESIUM OXIDE
     Route: 048
     Dates: start: 20230904
  10. REXULTI [Concomitant]
     Active Substance: BREXPIPRAZOLE
     Route: 048
  11. REXULTI [Concomitant]
     Active Substance: BREXPIPRAZOLE
     Route: 048
     Dates: start: 20231010, end: 20231024

REACTIONS (3)
  - Urinary retention [Recovered/Resolved]
  - Drug interaction [Unknown]
  - Underdose [Unknown]

NARRATIVE: CASE EVENT DATE: 20231020
